FAERS Safety Report 17559244 (Version 1)
Quarter: 2020Q1

REPORT INFORMATION
  Report Type: Report from Study
  Country: EC (occurrence: EC)
  Receive Date: 20200319
  Receipt Date: 20200319
  Transmission Date: 20200409
  Serious: Yes (Other)
  Sender: FDA-Public Use
  Company Number: EC-ROCHE-2465811

PATIENT
  Sex: Female

DRUGS (2)
  1. BONVIVA [Suspect]
     Active Substance: IBANDRONATE SODIUM
     Indication: OSTEOPENIA
  2. BONVIVA [Suspect]
     Active Substance: IBANDRONATE SODIUM
     Indication: OSTEOPOROSIS
     Route: 065

REACTIONS (9)
  - Paralysis [Unknown]
  - Headache [Unknown]
  - Pain [Unknown]
  - Discomfort [Unknown]
  - Dyspnoea [Unknown]
  - Malaise [Unknown]
  - Musculoskeletal chest pain [Unknown]
  - Movement disorder [Unknown]
  - Glaucoma [Unknown]
